FAERS Safety Report 18851288 (Version 1)
Quarter: 2021Q1

REPORT INFORMATION
  Report Type: Spontaneous
  Country: TH (occurrence: TH)
  Receive Date: 20210205
  Receipt Date: 20210205
  Transmission Date: 20210420
  Serious: Yes (Other)
  Sender: FDA-Public Use
  Company Number: TH-ROCHE-2759879

PATIENT
  Age: 58 Year
  Sex: Female

DRUGS (1)
  1. TRASTUZUMAB EMTANSINE [Suspect]
     Active Substance: ADO-TRASTUZUMAB EMTANSINE
     Indication: NON-SMALL CELL LUNG CANCER
     Dosage: TREATMENT STOPPED
     Route: 042
     Dates: start: 20201109, end: 20210106

REACTIONS (3)
  - Intentional product use issue [Unknown]
  - Metastases to central nervous system [Unknown]
  - Off label use [Unknown]
